FAERS Safety Report 8488747-1 (Version None)
Quarter: 2012Q2

REPORT INFORMATION
  Report Type: 
  Country: None (occurrence: None)
  Receive Date: 20120626
  Receipt Date: 20120615
  Transmission Date: 20120825
  Serious: Yes (Other)
  Sender: FDA-Public Use
  Company Number: ABR_00503_2012

PATIENT
  Age: 88 Year
  Sex: Female

DRUGS (2)
  1. ERYTHROMYCIN ETHLSUCCINATE [Suspect]
     Indication: ORAL INFECTION
     Dosage: DF ORAL
     Route: 048
     Dates: start: 20120604, end: 20120611
  2. ATENOLOL [Concomitant]

REACTIONS (2)
  - DEAFNESS [None]
  - TINNITUS [None]
